FAERS Safety Report 19790203 (Version 1)
Quarter: 2021Q3

REPORT INFORMATION
  Report Type: Spontaneous
  Country: US (occurrence: US)
  Receive Date: 20210906
  Receipt Date: 20210906
  Transmission Date: 20211014
  Serious: Yes (Other)
  Sender: FDA-Public Use
  Company Number: US-DRREDDYS-LIT/USA/21/0139750

PATIENT
  Age: 67 Year
  Sex: Male

DRUGS (7)
  1. COLESTYRAMINE [Suspect]
     Active Substance: CHOLESTYRAMINE
     Indication: PRIMARY BILIARY CHOLANGITIS
  2. FENOFIBRATE. [Suspect]
     Active Substance: FENOFIBRATE
     Indication: PRIMARY BILIARY CHOLANGITIS
  3. SERTRALINE [Suspect]
     Active Substance: SERTRALINE HYDROCHLORIDE
     Indication: PRIMARY BILIARY CHOLANGITIS
  4. HYDROXYZINE HYDROCHLORIDE. [Suspect]
     Active Substance: HYDROXYZINE HYDROCHLORIDE
     Indication: PRIMARY BILIARY CHOLANGITIS
  5. URSODEOXYCHOLIC ACID [Concomitant]
     Active Substance: URSODIOL
     Indication: PRIMARY BILIARY CHOLANGITIS
  6. DIPHENHYDRAMINE HYDROCHLORIDE. [Suspect]
     Active Substance: DIPHENHYDRAMINE HYDROCHLORIDE
     Indication: PRIMARY BILIARY CHOLANGITIS
  7. NALTREXONE [Suspect]
     Active Substance: NALTREXONE
     Indication: PRIMARY BILIARY CHOLANGITIS

REACTIONS (1)
  - Drug ineffective [Unknown]
